FAERS Safety Report 4618207-7 (Version None)
Quarter: 2005Q1

REPORT INFORMATION
  Report Type: 
  Country: None (occurrence: None)
  Receive Date: 20050322
  Receipt Date: 20050309
  Transmission Date: 20050727
  Serious: Yes (Other)
  Sender: FDA-Public Use
  Company Number: 2005013887

PATIENT
  Age: 75 Year
  Sex: Male
  Weight: 80 kg

DRUGS (6)
  1. TAHOR (ATORVASTATIN) [Suspect]
     Indication: HYPERCHOLESTEROLAEMIA
     Dosage: 20 MG (20 MG, DAILY), ORAL
     Route: 048
     Dates: start: 19980101, end: 20050101
  2. DRUG, UNSPECIFIED (DRUG, UNSPECIFEID) [Concomitant]
  3. METOPROLOL TARTRATE [Concomitant]
  4. CLOPIDOGREL BISULFATE [Concomitant]
  5. PERINDOPRIL (PERINDOPRIL) [Concomitant]
  6. ALLOPURINOL [Concomitant]

REACTIONS (3)
  - DRUG HYPERSENSITIVITY [None]
  - INTERSTITIAL LUNG DISEASE [None]
  - PULMONARY FIBROSIS [None]
